FAERS Safety Report 18280989 (Version 1)
Quarter: 2020Q3

REPORT INFORMATION
  Report Type: Spontaneous
  Country: GB (occurrence: GB)
  Receive Date: 20200918
  Receipt Date: 20200918
  Transmission Date: 20201103
  Serious: Yes (Other)
  Sender: FDA-Public Use
  Company Number: GB-SUN PHARMACEUTICAL INDUSTRIES LTD-2020RR-261119

PATIENT
  Age: 36 Year
  Sex: Female
  Weight: 72.11 kg

DRUGS (2)
  1. VENLAFAXINE [Suspect]
     Active Substance: VENLAFAXINE HYDROCHLORIDE
     Indication: DEPRESSION SUICIDAL
     Dosage: UNK
     Route: 048
     Dates: start: 20200701, end: 20200715
  2. DULOXETINE HYDROCHLORIDE. [Concomitant]
     Active Substance: DULOXETINE HYDROCHLORIDE
     Indication: PRODUCT USED FOR UNKNOWN INDICATION
     Dosage: UNK
     Route: 065

REACTIONS (10)
  - Paranoia [Unknown]
  - Hallucination [Recovered/Resolved]
  - Violence-related symptom [Unknown]
  - Thinking abnormal [Unknown]
  - Illogical thinking [Unknown]
  - Depression [Recovering/Resolving]
  - Negative thoughts [Unknown]
  - Condition aggravated [Unknown]
  - Memory impairment [Recovered/Resolved]
  - Suicidal ideation [Unknown]

NARRATIVE: CASE EVENT DATE: 20200705
